FAERS Safety Report 10610811 (Version 1)
Quarter: 2014Q4

REPORT INFORMATION
  Report Type: Spontaneous
  Country: US (occurrence: US)
  Receive Date: 20141126
  Receipt Date: 20141126
  Transmission Date: 20150529
  Serious: No
  Sender: FDA-Public Use
  Company Number: US-MALLINCKRODT-T201401090

PATIENT
  Sex: Male

DRUGS (1)
  1. GABLOFEN [Suspect]
     Active Substance: BACLOFEN
     Indication: MUSCLE SPASTICITY
     Dosage: 699.1 MCG/DAY
     Route: 037

REACTIONS (2)
  - Pyrexia [Unknown]
  - Implant site inflammation [Unknown]

NARRATIVE: CASE EVENT DATE: 2013
